FAERS Safety Report 12800579 (Version 1)
Quarter: 2016Q3

REPORT INFORMATION
  Report Type: Report from Study
  Country: VE (occurrence: VE)
  Receive Date: 20160930
  Receipt Date: 20160930
  Transmission Date: 20161109
  Serious: Yes (Death)
  Sender: FDA-Public Use
  Company Number: VE-ABBVIE-16P-178-1743662-00

PATIENT
  Sex: Female

DRUGS (5)
  1. BENUTREX [Concomitant]
     Indication: PRODUCT USED FOR UNKNOWN INDICATION
  2. VYTORIN [Concomitant]
     Active Substance: EZETIMIBE\SIMVASTATIN
     Indication: PRODUCT USED FOR UNKNOWN INDICATION
  3. OMEPRAZOL [Concomitant]
     Active Substance: OMEPRAZOLE
     Indication: PRODUCT USED FOR UNKNOWN INDICATION
  4. LOSARTAN. [Concomitant]
     Active Substance: LOSARTAN
     Indication: PRODUCT USED FOR UNKNOWN INDICATION
  5. ZEMPLAR [Suspect]
     Active Substance: PARICALCITOL
     Indication: NEPHROPATHY
     Route: 042
     Dates: start: 20160101

REACTIONS (1)
  - Sepsis [Fatal]
